FAERS Safety Report 15612946 (Version 1)
Quarter: 2018Q4

REPORT INFORMATION
  Report Type: Spontaneous
  Country: US (occurrence: US)
  Receive Date: 20181113
  Receipt Date: 20181113
  Transmission Date: 20190205
  Serious: Yes (Other)
  Sender: FDA-Public Use
  Company Number: US-PFIZER INC-2018460716

PATIENT
  Age: 72 Year
  Sex: Female
  Weight: 50.8 kg

DRUGS (1)
  1. XELJANZ XR [Suspect]
     Active Substance: TOFACITINIB CITRATE
     Indication: RHEUMATOID ARTHRITIS
     Dosage: 11 MG, 1X/DAY
     Route: 048
     Dates: start: 201810, end: 201810

REACTIONS (5)
  - Pyrexia [Recovered/Resolved]
  - Genital swelling [Recovered/Resolved]
  - Feeling cold [Recovered/Resolved]
  - Genital abscess [Recovered/Resolved]
  - Genital discomfort [Recovering/Resolving]

NARRATIVE: CASE EVENT DATE: 201810
